FAERS Safety Report 13457580 (Version 1)
Quarter: 2017Q2

REPORT INFORMATION
  Report Type: Spontaneous
  Country: US (occurrence: US)
  Receive Date: 20170419
  Receipt Date: 20170419
  Transmission Date: 20170830
  Serious: No
  Sender: FDA-Public Use
  Company Number: US-AMGEN-USASP2017055692

PATIENT
  Sex: Female

DRUGS (1)
  1. ENBREL [Suspect]
     Active Substance: ETANERCEPT
     Indication: GASTROINTESTINAL DISORDER
     Dosage: 50 MG, QWK
     Route: 058
     Dates: end: 201703

REACTIONS (2)
  - Dehydration [Unknown]
  - Diarrhoea [Unknown]
